FAERS Safety Report 13272442 (Version 2)
Quarter: 2018Q3

REPORT INFORMATION
  Report Type: Spontaneous
  Country: US (occurrence: US)
  Receive Date: 20170227
  Receipt Date: 20180907
  Transmission Date: 20181010
  Serious: Yes (Hospitalization)
  Sender: FDA-Public Use
  Company Number: US-DRREDDYS-USA/USA/17/0087433

PATIENT
  Age: 45 Year
  Sex: Female

DRUGS (3)
  1. NICOTINE. [Suspect]
     Active Substance: NICOTINE
     Indication: SMOKING CESSATION THERAPY
     Route: 061
  2. NICOTINE. [Suspect]
     Active Substance: NICOTINE
     Route: 061
  3. NICODERM CQ [Suspect]
     Active Substance: NICOTINE
     Indication: SMOKING CESSATION THERAPY
     Route: 061

REACTIONS (5)
  - Product adhesion issue [Unknown]
  - Cardiac disorder [Unknown]
  - Wrong technique in product usage process [Unknown]
  - Application site reaction [Not Recovered/Not Resolved]
  - Overdose [Unknown]
